FAERS Safety Report 5581275-2 (Version None)
Quarter: 2008Q1

REPORT INFORMATION
  Report Type: 
  Country: None (occurrence: None)
  Receive Date: 20080104
  Receipt Date: 20071221
  Transmission Date: 20080703
  Serious: Yes (Other)
  Sender: FDA-Public Use
  Company Number: CA-JNJFOC-20071205702

PATIENT
  Age: 17 Year
  Sex: Female

DRUGS (3)
  1. REMICADE [Suspect]
  2. REMICADE [Suspect]
  3. REMICADE [Suspect]
     Indication: CROHN'S DISEASE

REACTIONS (7)
  - CHEST PAIN [None]
  - INFUSION RELATED REACTION [None]
  - MYALGIA [None]
  - PRURITUS [None]
  - RASH [None]
  - URTICARIA [None]
  - WHEEZING [None]
